FAERS Safety Report 20076663 (Version 1)
Quarter: 2021Q4

REPORT INFORMATION
  Report Type: Spontaneous
  Country: PT (occurrence: PT)
  Receive Date: 20211116
  Receipt Date: 20211116
  Transmission Date: 20220303
  Serious: Yes (Hospitalization, Other)
  Sender: FDA-Public Use
  Company Number: PT-NOVARTISPH-NVSC2021PT256039

PATIENT
  Age: 53 Year
  Sex: Male

DRUGS (4)
  1. CARBAMAZEPINE [Suspect]
     Active Substance: CARBAMAZEPINE
     Indication: Mental disorder
     Dosage: UNK
     Route: 065
  2. DIAZEPAM [Concomitant]
     Active Substance: DIAZEPAM
     Indication: Mental disorder
     Dosage: UNK
     Route: 065
  3. RISPERIDONE [Concomitant]
     Active Substance: RISPERIDONE
     Indication: Mental disorder
     Dosage: UNK
     Route: 065
  4. TRIHEXYPHENIDYL [Concomitant]
     Active Substance: TRIHEXYPHENIDYL
     Indication: Mental disorder
     Dosage: UNK
     Route: 065

REACTIONS (5)
  - Aplastic anaemia [Unknown]
  - Dyspnoea [Unknown]
  - Thrombocytopenia [Unknown]
  - Neutropenia [Unknown]
  - Fatigue [Unknown]
